FAERS Safety Report 5103886-0 (Version None)
Quarter: 2006Q3

REPORT INFORMATION
  Report Type: 
  Country: None (occurrence: None)
  Receive Date: 20060913
  Receipt Date: 20060904
  Transmission Date: 20061208
  Serious: Yes (Hospitalization)
  Sender: FDA-Public Use
  Company Number: NL-GLAXOSMITHKLINE-B0437821A

PATIENT
  Age: 70 Year
  Sex: Male
  Weight: 80 kg

DRUGS (7)
  1. ROPINIROLE HCL [Suspect]
     Indication: PARKINSON'S DISEASE
     Dosage: 3MG PER DAY
     Dates: start: 20050701, end: 20060628
  2. PANTOZOL [Suspect]
     Indication: PROPHYLAXIS
     Dosage: 20MG PER DAY
     Dates: start: 20040101, end: 20060629
  3. SEROQUEL [Suspect]
     Indication: DEPRESSION
     Dosage: 25MG PER DAY
     Dates: start: 20040101, end: 20060629
  4. NAPROXEN [Concomitant]
     Dosage: 250MG FOUR TIMES PER DAY
  5. OXAZEPAM [Concomitant]
     Dosage: 10MG PER DAY
  6. PAROXETINE HCL [Concomitant]
     Dosage: 20MG PER DAY
  7. LEVODOPA BENSERAZIDE [Concomitant]

REACTIONS (1)
  - HEPATITIS [None]
